FAERS Safety Report 8430561-7 (Version None)
Quarter: 2012Q2

REPORT INFORMATION
  Report Type: 
  Country: None (occurrence: None)
  Receive Date: 20120612
  Receipt Date: 20120607
  Transmission Date: 20120825
  Serious: Yes (Other)
  Sender: FDA-Public Use
  Company Number: JP-GLAXOSMITHKLINE-B0804473A

PATIENT
  Age: 96 Year
  Sex: Female
  Weight: 35 kg

DRUGS (6)
  1. PREDNISOLONE [Concomitant]
     Dosage: 2MG PER DAY
     Route: 048
  2. VALTREX [Suspect]
     Indication: HERPES ZOSTER
     Dosage: 1000MG PER DAY
     Route: 048
     Dates: start: 20120523, end: 20120529
  3. CALCITRIOL [Concomitant]
     Dosage: .5MCG PER DAY
     Route: 048
  4. AMLODIPINE BESYLATE [Concomitant]
     Dosage: 2.5MG PER DAY
     Route: 048
  5. ENALAPRIL MALEATE [Concomitant]
     Dosage: 2.5MG PER DAY
     Route: 048
  6. SPIRONOLACTONE [Concomitant]
     Dosage: 25MG PER DAY
     Route: 048

REACTIONS (5)
  - RESTLESSNESS [None]
  - DEHYDRATION [None]
  - INSOMNIA [None]
  - COMA [None]
  - HYPOPHAGIA [None]
